FAERS Safety Report 6984984-3 (Version None)
Quarter: 2010Q3

REPORT INFORMATION
  Report Type: 
  Country: None (occurrence: None)
  Receive Date: 20100915
  Receipt Date: 20100709
  Transmission Date: 20110219
  Serious: Yes (Hospitalization, Other)
  Sender: FDA-Public Use
  Company Number: PHHY2010TW45404

PATIENT
  Sex: Female
  Weight: 50 kg

DRUGS (5)
  1. ZOLEDRONATE T29581++BM [Suspect]
     Indication: METASTASES TO BONE
     Dosage: 4 MG, QW4
     Route: 042
     Dates: start: 20090819, end: 20100609
  2. ZOLEDRONATE T29581++BM [Suspect]
     Indication: BREAST CANCER
     Dosage: 4 MG, QW4
     Route: 042
     Dates: start: 20090819, end: 20100719
  3. CYCLOPHOSPHAMIDE [Concomitant]
     Indication: BREAST CANCER
     Dosage: 50 MG, QD
     Dates: start: 20100609
  4. CAPECITABINE [Concomitant]
     Indication: BREAST CANCER
     Dosage: 1500 MG, 2 WEEK AND 1 WEEK REST
     Dates: start: 20100609
  5. METHOTREXATE [Concomitant]
     Indication: BREAST CANCER
     Dosage: 2.5 MG, QW2
     Dates: start: 20100609, end: 20100707

REACTIONS (14)
  - ASTHENIA [None]
  - BEDRIDDEN [None]
  - BLISTER [None]
  - DIZZINESS [None]
  - HERPES ZOSTER [None]
  - LOSS OF CONSCIOUSNESS [None]
  - METASTASES TO CENTRAL NERVOUS SYSTEM [None]
  - MOUTH ULCERATION [None]
  - MUSCULOSKELETAL CHEST PAIN [None]
  - NEUTROPENIA [None]
  - PAIN [None]
  - PALLOR [None]
  - PYREXIA [None]
  - WOUND COMPLICATION [None]
